FAERS Safety Report 5096811-2 (Version None)
Quarter: 2006Q3

REPORT INFORMATION
  Report Type: 
  Country: None (occurrence: None)
  Receive Date: 20060831
  Receipt Date: 20060821
  Transmission Date: 20061208
  Serious: Yes (Other)
  Sender: FDA-Public Use
  Company Number: 2006086430

PATIENT
  Age: 73 Year
  Sex: Male

DRUGS (13)
  1. LIPITOR [Suspect]
     Indication: HYPERLIPIDAEMIA
     Dosage: 10 MG (1 IN  1 D), ORAL
     Route: 048
     Dates: start: 20050101, end: 20060622
  2. OMEPRAZOLE [Suspect]
     Indication: REFLUX OESOPHAGITIS
     Dosage: 20 MG (1 IN 1 D), ORAL
     Route: 048
     Dates: start: 20051201, end: 20060623
  3. GASMOTIN (MOSAPRIDE CITRATE) [Suspect]
     Indication: REFLUX OESOPHAGITIS
     Dosage: 15 MG (1 IN 1 D), ORAL
     Route: 048
     Dates: start: 20060401, end: 20060614
  4. HERBAL PREPARATION (HERBAL PREPARATION) [Suspect]
     Indication: EMPHYSEMA
     Dosage: 2.5 GRAM (1 IN 1 D), ORAL
     Route: 048
     Dates: start: 20060401, end: 20060614
  5. CARNACULIN (PANCREAS EXTRACT) [Concomitant]
  6. SALMETEROL XINAFOATE (SALMETEROL XINAFOATE) [Concomitant]
  7. SPIRIVA [Concomitant]
  8. FLONASE [Concomitant]
  9. LAMISIL [Concomitant]
  10. UREA (UREA) [Concomitant]
  11. THEOPHYLLINE [Concomitant]
  12. FLIVAS (NAFTOPIDIL) [Concomitant]
  13. NEURONTIN (ORGAN LYSATE, STANDARDIZED) [Concomitant]

REACTIONS (7)
  - ALANINE AMINOTRANSFERASE INCREASED [None]
  - ASPARTATE AMINOTRANSFERASE INCREASED [None]
  - BLOOD ALKALINE PHOSPHATASE INCREASED [None]
  - EMPHYSEMA [None]
  - GAMMA-GLUTAMYLTRANSFERASE INCREASED [None]
  - LIVER DISORDER [None]
  - REFLUX OESOPHAGITIS [None]
